FAERS Safety Report 9870094 (Version 1)
Quarter: 2014Q1

REPORT INFORMATION
  Report Type: Spontaneous
  Country: US (occurrence: US)
  Receive Date: 20140205
  Receipt Date: 20140205
  Transmission Date: 20141002
  Serious: No
  Sender: FDA-Public Use
  Company Number: US-BAUSCH-BL-2013-006078

PATIENT
  Age: 59 Year
  Sex: Female

DRUGS (2)
  1. LOTEPREDNOL ETABONATE OPHTHALMIC OINTMENT 0.5% [Suspect]
     Indication: DRY EYE
     Dosage: 1 RIBBON; ONCE; RIGHT EYE
     Route: 047
     Dates: start: 20131104, end: 20131104
  2. LOTEPREDNOL ETABONATE OPHTHALMIC OINTMENT 0.5% [Suspect]
     Dosage: 1 RIBBON; ONCE; LEFT EYE
     Route: 047
     Dates: start: 20131104, end: 20131104

REACTIONS (4)
  - Off label use [Recovered/Resolved]
  - Oral discomfort [Recovering/Resolving]
  - Eye pruritus [Recovering/Resolving]
  - Headache [Recovered/Resolved]
